FAERS Safety Report 19593856 (Version 1)
Quarter: 2021Q3

REPORT INFORMATION
  Report Type: Spontaneous
  Country: FR (occurrence: FR)
  Receive Date: 20210722
  Receipt Date: 20210722
  Transmission Date: 20211014
  Serious: Yes (Hospitalization)
  Sender: FDA-Public Use
  Company Number: FR-MYLANLABS-2021M1043368

PATIENT
  Age: 2 Year
  Sex: Female
  Weight: 13 kg

DRUGS (2)
  1. PROGLYCEM [Suspect]
     Active Substance: DIAZOXIDE
     Indication: HYPERINSULINISM
     Dosage: 120 MILLIGRAM, QD
     Route: 048
     Dates: start: 20201218, end: 20210114
  2. DESLORATADINE MYLAN 0,5 MG/ML, SOLUTION BUVABLE [Suspect]
     Active Substance: DESLORATADINE
     Indication: FOLLICULITIS
     Dosage: 2.5 MILLIGRAM, QD
     Route: 048
     Dates: start: 20210101, end: 20210114

REACTIONS (1)
  - Drug reaction with eosinophilia and systemic symptoms [Recovering/Resolving]

NARRATIVE: CASE EVENT DATE: 20210107
